FAERS Safety Report 8471222-8 (Version None)
Quarter: 2012Q2

REPORT INFORMATION
  Report Type: 
  Country: None (occurrence: None)
  Receive Date: 20120627
  Receipt Date: 20120622
  Transmission Date: 20120825
  Serious: No
  Sender: FDA-Public Use
  Company Number: US-BAYER-2012-063011

PATIENT
  Age: 83 Year
  Sex: Male
  Weight: 77 kg

DRUGS (3)
  1. ALEVE (CAPLET) [Suspect]
     Indication: ANALGESIC THERAPY
     Dosage: 1 TO 2 DF, BID
     Route: 048
     Dates: start: 20120621, end: 20120622
  2. ASPIRIN [Concomitant]
  3. PROTEIN SUPPLEMENTS [Concomitant]

REACTIONS (2)
  - NO ADVERSE EVENT [None]
  - PAIN [None]
